FAERS Safety Report 6520563-X (Version None)
Quarter: 2009Q4

REPORT INFORMATION
  Report Type: 
  Country: None (occurrence: None)
  Receive Date: 20091229
  Receipt Date: 20091217
  Transmission Date: 20100525
  Serious: Yes (Other)
  Sender: FDA-Public Use
  Company Number: US-BAYER-200917741BCC

PATIENT
  Age: 51 Year
  Sex: Male
  Weight: 95 kg

DRUGS (1)
  1. ALKA SELTZER PLUS EFFERVESCENT COLD ORANGE ZEST [Suspect]
     Indication: NASAL CONGESTION
     Dosage: TOTAL DAILY DOSE: 1 DF  UNIT DOSE: 1 DF
     Route: 048
     Dates: start: 20091216, end: 20091216

REACTIONS (11)
  - ABDOMINAL PAIN UPPER [None]
  - ABDOMINAL RIGIDITY [None]
  - CHILLS [None]
  - DYSPNOEA [None]
  - EYE SWELLING [None]
  - FLATULENCE [None]
  - HYPERSENSITIVITY [None]
  - PRURITUS [None]
  - SWELLING FACE [None]
  - THROAT TIGHTNESS [None]
  - TREMOR [None]
